FAERS Safety Report 13485370 (Version 1)
Quarter: 2017Q2

REPORT INFORMATION
  Report Type: Spontaneous
  Country: IT (occurrence: IT)
  Receive Date: 20170426
  Receipt Date: 20170426
  Transmission Date: 20170830
  Serious: Yes (Other)
  Sender: FDA-Public Use
  Company Number: IT-SA-2017SA073795

PATIENT
  Age: 73 Year
  Sex: Female

DRUGS (9)
  1. RIFINAH [Suspect]
     Active Substance: ISONIAZID\RIFAMPIN
     Indication: LYMPH NODE TUBERCULOSIS
     Route: 048
     Dates: start: 20111219
  2. PIRALDINA [Suspect]
     Active Substance: PYRAZINAMIDE
     Indication: LYMPH NODE TUBERCULOSIS
     Route: 048
     Dates: start: 20111027
  3. ETAPIAM [Suspect]
     Active Substance: ETHAMBUTOL HYDROCHLORIDE
     Indication: LYMPH NODE TUBERCULOSIS
     Route: 048
     Dates: start: 20111219
  4. RIFINAH [Suspect]
     Active Substance: ISONIAZID\RIFAMPIN
     Indication: LYMPH NODE TUBERCULOSIS
     Dosage: STRENGTH: 300MG/150 MG
     Route: 048
     Dates: start: 20111027
  5. ETAPIAM [Suspect]
     Active Substance: ETHAMBUTOL HYDROCHLORIDE
     Indication: LYMPH NODE TUBERCULOSIS
     Dosage: STRENGTH: 400 MG
     Route: 048
     Dates: start: 20111027
  6. EUTIROX [Concomitant]
     Active Substance: LEVOTHYROXINE SODIUM
     Dosage: 50 MICROGRAMS DOSE:1 UNIT(S)
     Route: 048
  7. PIRALDINA [Suspect]
     Active Substance: PYRAZINAMIDE
     Indication: LYMPH NODE TUBERCULOSIS
     Route: 048
     Dates: start: 20111219
  8. TRIATEC HCT [Concomitant]
     Active Substance: HYDROCHLOROTHIAZIDE\RAMIPRIL
     Indication: LYMPH NODE TUBERCULOSIS
     Dosage: 5MG + 25 MG DOSE:0.5 UNIT(S)
     Route: 048
  9. SIVASTIN [Concomitant]
     Active Substance: SIMVASTATIN
     Dosage: 20 MG DOSE:0.5 UNIT(S)
     Route: 048

REACTIONS (6)
  - Vomiting [Recovering/Resolving]
  - Dysstasia [Recovering/Resolving]
  - Feeling hot [Recovering/Resolving]
  - Memory impairment [Recovering/Resolving]
  - Malaise [Recovering/Resolving]
  - Fatigue [Recovering/Resolving]

NARRATIVE: CASE EVENT DATE: 20111120
